FAERS Safety Report 7633888-1 (Version None)
Quarter: 2011Q3

REPORT INFORMATION
  Report Type: 
  Country: None (occurrence: None)
  Receive Date: 20110725
  Receipt Date: 20110719
  Transmission Date: 20111222
  Serious: Yes (Life-Threatening, Hospitalization, Other)
  Sender: FDA-Public Use
  Company Number: GXKR2011DE02347

PATIENT
  Age: 43 Year
  Sex: Female
  Weight: 68 kg

DRUGS (10)
  1. ZYPREXA [Concomitant]
     Dosage: 5X10 MG/DAY
     Route: 048
     Dates: start: 20100201
  2. LEVOTHYROXINE SODIUM [Concomitant]
     Dosage: 125 UG, QD
     Route: 048
     Dates: start: 20040101
  3. AARANE N [Concomitant]
     Dosage: 2 DF, BID
     Dates: start: 20000101
  4. HYDROCHLOROTHIAZIDE [Concomitant]
     Dosage: 25 MG, QD
     Route: 048
     Dates: start: 20100101
  5. VOLTAREN [Suspect]
     Indication: ARTHRALGIA
     Dosage: 50 MG 2-3X WEEKLY
     Route: 048
     Dates: start: 19800101, end: 20110221
  6. FERROUS SULFATE TAB [Concomitant]
     Dosage: 100 MG, QD
     Route: 048
     Dates: start: 19800101
  7. METFORMIN HCL [Suspect]
     Dosage: 1000 MG, TID
     Route: 048
     Dates: start: 20040101, end: 20110221
  8. METOPROLOL SUCCINATE [Concomitant]
     Dosage: 47.5 MG, QD
     Route: 048
     Dates: start: 20050101
  9. OMEPRAZOLE [Concomitant]
     Dosage: 40 MG, QD
     Route: 048
     Dates: start: 19900101
  10. SERTRALINE HYDROCHLORIDE [Concomitant]
     Dosage: 100 MG, QD
     Route: 048
     Dates: start: 20101001

REACTIONS (2)
  - LACTIC ACIDOSIS [None]
  - RENAL FAILURE ACUTE [None]
